FAERS Safety Report 9924958 (Version 1)
Quarter: 2014Q1

REPORT INFORMATION
  Report Type: Spontaneous
  Country: US (occurrence: US)
  Receive Date: 20140226
  Receipt Date: 20140226
  Transmission Date: 20141002
  Serious: No
  Sender: FDA-Public Use
  Company Number: US-009507513-1402USA003980

PATIENT
  Age: 30 Year
  Sex: Female
  Weight: 54.42 kg

DRUGS (1)
  1. NEXPLANON [Suspect]
     Indication: CONTRACEPTION
     Dosage: UNK
     Route: 059
     Dates: start: 20130824

REACTIONS (8)
  - Menstruation irregular [Unknown]
  - Metrorrhagia [Unknown]
  - Back pain [Unknown]
  - Nausea [Unknown]
  - Dizziness [Unknown]
  - Weight increased [Unknown]
  - Mood swings [Unknown]
  - Acne [Unknown]
